FAERS Safety Report 9169733 (Version 4)
Quarter: 2013Q4

REPORT INFORMATION
  Report Type: Spontaneous
  Country: US (occurrence: US)
  Receive Date: 20130318
  Receipt Date: 20131112
  Transmission Date: 20140711
  Serious: Yes (Hospitalization, Disabling, Other)
  Sender: FDA-Public Use
  Company Number: US-009507513-1303USA008128

PATIENT
  Sex: Female

DRUGS (6)
  1. FOSAMAX [Suspect]
     Indication: OSTEOPOROSIS PROPHYLAXIS
     Dosage: UNK
     Route: 048
     Dates: start: 200505, end: 201205
  2. FOSAMAX PLUS D [Suspect]
     Indication: OSTEOPOROSIS PROPHYLAXIS
     Dosage: UNK
     Route: 048
     Dates: start: 200505, end: 201205
  3. CALCIUM (UNSPECIFIED) [Concomitant]
  4. VITAMINS (UNSPECIFIED) [Concomitant]
  5. VITAMIN D (UNSPECIFIED) [Concomitant]
  6. OMEGA-3 MARINE TRIGLYCERIDES [Concomitant]

REACTIONS (6)
  - Femur fracture [Not Recovered/Not Resolved]
  - Intramedullary rod insertion [Unknown]
  - Septic shock [Unknown]
  - Fracture nonunion [Unknown]
  - Central venous catheterisation [Unknown]
  - Osteoporosis [Unknown]
